FAERS Safety Report 21004086 (Version 2)
Quarter: 2022Q3

REPORT INFORMATION
  Report Type: Report from Study
  Country: US (occurrence: US)
  Receive Date: 20220624
  Receipt Date: 20220719
  Transmission Date: 20221026
  Serious: Yes (Death, Other)
  Sender: FDA-Public Use
  Company Number: US-BAYER-2022A087885

PATIENT
  Age: 56 Year
  Sex: Female

DRUGS (1)
  1. STIVARGA [Suspect]
     Active Substance: REGORAFENIB
     Indication: Colon cancer
     Dosage: DAILY DOSE 160 MG FOR 21 DAYS THEN 7 DAYS OFF
     Route: 048

REACTIONS (4)
  - Death [Fatal]
  - Haemorrhage urinary tract [Recovering/Resolving]
  - Urinary retention [None]
  - Product dose omission issue [None]

NARRATIVE: CASE EVENT DATE: 20220604
